FAERS Safety Report 6316056-5 (Version None)
Quarter: 2009Q3

REPORT INFORMATION
  Report Type: 
  Country: None (occurrence: None)
  Receive Date: 20090820
  Receipt Date: 20090811
  Transmission Date: 20100115
  Serious: Yes (Other)
  Sender: FDA-Public Use
  Company Number: US-JNJFOC-20090803943

PATIENT
  Age: 39 Year
  Sex: Female

DRUGS (7)
  1. HALOPERIDOL [Suspect]
     Indication: DRUG USE FOR UNKNOWN INDICATION
     Route: 065
  2. AMANTADINE HCL [Interacting]
     Indication: TARDIVE DYSKINESIA
     Route: 048
  3. DEPAKOTE [Interacting]
     Indication: DRUG USE FOR UNKNOWN INDICATION
     Route: 065
  4. SEROQUEL [Interacting]
     Indication: DRUG USE FOR UNKNOWN INDICATION
     Route: 065
  5. WELLBUTRIN [Interacting]
     Indication: DRUG USE FOR UNKNOWN INDICATION
     Route: 065
  6. LEVOTHYROXINE [Concomitant]
     Route: 065
  7. LISINOPRIL [Concomitant]
     Route: 065

REACTIONS (2)
  - CORNEAL OEDEMA [None]
  - DRUG INTERACTION [None]
